FAERS Safety Report 6790816-9 (Version None)
Quarter: 2010Q2

REPORT INFORMATION
  Report Type: 
  Country: None (occurrence: None)
  Receive Date: 20100624
  Receipt Date: 20100616
  Transmission Date: 20101027
  Serious: Yes (Hospitalization, Disabling)
  Sender: FDA-Public Use
  Company Number: US-ASTRAZENECA-2010SE28398

PATIENT
  Age: 58 Year
  Sex: Female

DRUGS (13)
  1. SEROQUEL [Suspect]
     Indication: SCHIZOPHRENIA
     Route: 048
     Dates: start: 20081113
  2. DARVOCET [Concomitant]
     Indication: PAIN
     Dosage: 100 TO 600 AS NEEDED
     Route: 048
     Dates: start: 20091110
  3. AMBIEN [Concomitant]
     Indication: SLEEP DISORDER
     Route: 048
     Dates: start: 20081211
  4. AMIODARONE HCL [Concomitant]
     Indication: CARDIAC DISORDER
     Route: 048
     Dates: start: 20091110
  5. COUMADIN [Concomitant]
     Indication: ANTICOAGULANT THERAPY
     Route: 048
     Dates: start: 20080729
  6. FAMOTIDINE [Concomitant]
     Indication: GASTROOESOPHAGEAL REFLUX DISEASE
     Route: 048
     Dates: start: 20070531
  7. FLOVENT HFA [Concomitant]
     Indication: DYSPNOEA
     Dosage: 110 MCG/ACT TWO TIMES A DAY
     Route: 055
     Dates: start: 20070425
  8. FUROSEMIDE [Concomitant]
     Indication: POLYURIA
     Route: 048
     Dates: start: 20090918
  9. K-DUR [Concomitant]
     Indication: ELECTROLYTE SUBSTITUTION THERAPY
     Route: 048
     Dates: start: 20091026
  10. LANOXIN [Concomitant]
     Indication: CARDIAC DISORDER
     Route: 048
     Dates: start: 20081113
  11. MULTIPLE VITAMIN [Concomitant]
     Indication: VITAMIN SUPPLEMENTATION
     Route: 048
     Dates: start: 20070425
  12. QUINAPRIL HCL [Concomitant]
     Indication: CARDIAC DISORDER
     Route: 048
     Dates: start: 20090918
  13. ZOLPIDEM [Concomitant]
     Indication: SLEEP DISORDER
     Route: 048
     Dates: start: 20090225

REACTIONS (3)
  - CHEST PAIN [None]
  - HYPERHIDROSIS [None]
  - PAIN IN EXTREMITY [None]
